FAERS Safety Report 5355866-8 (Version None)
Quarter: 2007Q2

REPORT INFORMATION
  Report Type: 
  Country: None (occurrence: None)
  Receive Date: 20070530
  Receipt Date: 20061030
  Transmission Date: 20071010
  Serious: Yes (Hospitalization)
  Sender: FDA-Public Use
  Company Number: US200610000842

PATIENT
  Age: 10 Year
  Sex: Male
  Weight: 45.4 kg

DRUGS (1)
  1. ZYPREXA [Suspect]
     Indication: MUSCLE TWITCHING
     Dosage: ORAL
     Route: 048
     Dates: start: 20050901, end: 20051001

REACTIONS (5)
  - ASTHENIA [None]
  - BLOOD GLUCOSE FLUCTUATION [None]
  - DIABETES MELLITUS INSULIN-DEPENDENT [None]
  - DIABETIC KETOACIDOSIS [None]
  - FATIGUE [None]
